FAERS Safety Report 8232718-7 (Version None)
Quarter: 2012Q1

REPORT INFORMATION
  Report Type: 
  Country: None (occurrence: None)
  Receive Date: 20120323
  Receipt Date: 20120309
  Transmission Date: 20120608
  Serious: Yes (Other)
  Sender: FDA-Public Use
  Company Number: PHHY2012JP019419

PATIENT

DRUGS (1)
  1. NEORAL [Suspect]
     Indication: MIXED CONNECTIVE TISSUE DISEASE
     Dosage: 50 MG, UNK
     Route: 064
     Dates: start: 20070601

REACTIONS (3)
  - PREMATURE BABY [None]
  - HYDROPS FOETALIS [None]
  - FOETAL EXPOSURE DURING PREGNANCY [None]
